FAERS Safety Report 9621292 (Version 1)
Quarter: 2013Q4

REPORT INFORMATION
  Report Type: Spontaneous
  Country: US (occurrence: US)
  Receive Date: 20131015
  Receipt Date: 20131015
  Transmission Date: 20140711
  Serious: Yes (Other)
  Sender: FDA-Public Use
  Company Number: US-B.I. PHARMACEUTICALS,INC./RIDGEFIELD-2013-BI-31829BP

PATIENT
  Sex: Female

DRUGS (5)
  1. COMBIVENT [Suspect]
     Route: 065
  2. ADVAIR [Suspect]
     Indication: CHRONIC OBSTRUCTIVE PULMONARY DISEASE
     Dosage: 2 PUF
     Route: 055
     Dates: start: 20130913, end: 20130915
  3. FLOVENT [Suspect]
     Indication: CHRONIC OBSTRUCTIVE PULMONARY DISEASE
     Dosage: FORMULATION: HFA -CFA FREE INHALER, STHRENGTH : 110 MCG 1 PUFF
     Route: 055
     Dates: start: 2007, end: 20130912
  4. BLOOD PRESSURE MEDICATION [Concomitant]
  5. ANTIHYPERCHOLESTEROLAEMIC [Concomitant]

REACTIONS (10)
  - Cardiac flutter [Recovered/Resolved]
  - Dry throat [Recovered/Resolved]
  - Palpitations [Recovered/Resolved]
  - Paranasal sinus hypersecretion [Recovered/Resolved]
  - Heart rate increased [Unknown]
  - Nervousness [Recovered/Resolved]
  - Malaise [Recovered/Resolved]
  - Tremor [Recovered/Resolved]
  - Drug administration error [Recovered/Resolved]
  - Adverse drug reaction [Unknown]
